FAERS Safety Report 21561366 (Version 1)
Quarter: 2022Q4

REPORT INFORMATION
  Report Type: Report from Study
  Country: US (occurrence: US)
  Receive Date: 20221107
  Receipt Date: 20221107
  Transmission Date: 20230113
  Serious: No
  Sender: FDA-Public Use
  Company Number: US-ABBVIE-4139011

PATIENT
  Sex: Female

DRUGS (4)
  1. RINVOQ [Suspect]
     Active Substance: UPADACITINIB
     Indication: Product used for unknown indication
     Route: 048
  2. Pfizer/BioNTech [Concomitant]
     Indication: COVID-19 immunisation
     Dosage: 1 IN ONCE ?1ST DOSE
     Route: 030
     Dates: start: 20210126, end: 20210126
  3. Pfizer/BioNTech [Concomitant]
     Indication: COVID-19 immunisation
     Dosage: 1 IN ONCE ?2ND DOSE
     Route: 030
     Dates: start: 20210223, end: 20210223
  4. Pfizer/BioNTech [Concomitant]
     Indication: COVID-19 immunisation
     Dosage: 1 IN ONCE ?BOOSTER
     Route: 030
     Dates: start: 20211006

REACTIONS (1)
  - Amnesia [Not Recovered/Not Resolved]
